FAERS Safety Report 6200823-2 (Version None)
Quarter: 2009Q2

REPORT INFORMATION
  Report Type: 
  Country: None (occurrence: None)
  Receive Date: 20090522
  Receipt Date: 20080919
  Transmission Date: 20091009
  Serious: Yes (Other)
  Sender: FDA-Public Use
  Company Number: US-ALEXION-A200800218

PATIENT
  Sex: Female

DRUGS (10)
  1. SOLIRIS [Suspect]
     Indication: PAROXYSMAL NOCTURNAL HAEMOGLOBINURIA
     Dosage: 600 MG, SINGLE
     Route: 042
     Dates: start: 20080819, end: 20080819
  2. SOLIRIS [Suspect]
     Dosage: 600 MG, SINGLE
     Route: 042
     Dates: start: 20080826, end: 20080826
  3. SOLIRIS [Suspect]
     Dosage: 600 MG, SINGLE
     Route: 042
     Dates: start: 20080903, end: 20080903
  4. SOLIRIS [Suspect]
     Dosage: 600 MG, SINGLE
     Route: 042
     Dates: start: 20080909, end: 20080909
  5. SOLIRIS [Suspect]
     Dosage: 900 MG, SINGLE
     Route: 042
     Dates: start: 20080916, end: 20080916
  6. BENADRYL [Concomitant]
     Indication: PREMEDICATION
     Dosage: 50 MG, Q2 WEEKS
     Route: 042
  7. ASPIRIN [Concomitant]
     Dosage: 81 MG, UNK
     Route: 048
  8. LISINOPRIL [Concomitant]
     Dosage: 10 MG, UNK
     Route: 048
  9. FOLIC ACID [Concomitant]
     Dosage: 1 MG, UNK
     Route: 048
  10. PAXIL [Concomitant]
     Dosage: 10 MG, UNK
     Route: 048

REACTIONS (2)
  - DRUG HYPERSENSITIVITY [None]
  - HYPERSENSITIVITY [None]
